FAERS Safety Report 8258837-7 (Version None)
Quarter: 2012Q2

REPORT INFORMATION
  Report Type: 
  Country: None (occurrence: None)
  Receive Date: 20120403
  Receipt Date: 20120403
  Transmission Date: 20120825
  Serious: Yes (Hospitalization)
  Sender: FDA-Public Use
  Company Number: None

PATIENT
  Sex: Female

DRUGS (12)
  1. PRILOSEC [Concomitant]
  2. FOLIC ACID [Concomitant]
  3. SANDOSTATIN [Concomitant]
  4. LISIN/HCTZ [Concomitant]
  5. CELEXA [Concomitant]
  6. SYNTHROID [Concomitant]
  7. SUTENT [Suspect]
     Indication: LIVER DISORDER
     Dosage: 37.5MG DAILY PO
     Route: 048
     Dates: start: 20111102, end: 20120321
  8. SUTENT [Suspect]
     Indication: CARCINOID TUMOUR
     Dosage: 37.5MG DAILY PO
     Route: 048
     Dates: start: 20111102, end: 20120321
  9. VALIUM [Concomitant]
  10. VITAMIN B-12 [Concomitant]
  11. SANDOSTATIN [Suspect]
  12. OXYCODONE HCL [Concomitant]

REACTIONS (6)
  - LOSS OF CONSCIOUSNESS [None]
  - TREMOR [None]
  - PANCREATITIS [None]
  - NAUSEA [None]
  - HYPOTENSION [None]
  - DRUG INTERACTION [None]
